FAERS Safety Report 7420473-X (Version None)
Quarter: 2011Q2

REPORT INFORMATION
  Report Type: 
  Country: None (occurrence: None)
  Receive Date: 20110418
  Receipt Date: 20110413
  Transmission Date: 20111010
  Serious: Yes (Hospitalization)
  Sender: FDA-Public Use
  Company Number: PHHO2010DE16636

PATIENT
  Sex: Female
  Weight: 96.2 kg

DRUGS (8)
  1. EVEROLIMUS [Suspect]
     Indication: RENAL TRANSPLANT
     Dosage: 1 MG, BID
     Route: 048
     Dates: start: 20100215
  2. EVEROLIMUS [Suspect]
     Dosage: 0.5 MG, BID
     Dates: start: 20101018, end: 20101025
  3. SANDIMMUNE [Suspect]
     Indication: RENAL TRANSPLANT
     Dosage: 50 MG, BID
     Dates: start: 20101018, end: 20101025
  4. MYFORTIC [Suspect]
     Indication: RENAL TRANSPLANT
     Dosage: 720 MG, BID
     Dates: start: 20091027
  5. EVEROLIMUS [Suspect]
     Dosage: 1 MG, BID
     Dates: start: 20100817, end: 20101017
  6. EVEROLIMUS [Suspect]
     Dosage: 1 MG, BID
     Route: 048
     Dates: start: 20110126
  7. SANDIMMUNE [Suspect]
     Dosage: 100 MG, BID
     Dates: start: 20101026
  8. URBASON [Suspect]
     Dosage: 4 MG, QD
     Dates: start: 20100211

REACTIONS (4)
  - VENA CAVA INJURY [None]
  - OVARIAN CYST [None]
  - OVARIAN CANCER [None]
  - OPERATIVE HAEMORRHAGE [None]
